FAERS Safety Report 16778731 (Version 1)
Quarter: 2019Q3

REPORT INFORMATION
  Report Type: Spontaneous
  Country: US (occurrence: US)
  Receive Date: 20190906
  Receipt Date: 20190906
  Transmission Date: 20191005
  Serious: No
  Sender: FDA-Public Use
  Company Number: US-GLAXOSMITHKLINE-US2019156663

PATIENT
  Age: 65 Year
  Sex: Male

DRUGS (4)
  1. COREG [Suspect]
     Active Substance: CARVEDILOL
     Indication: ATRIAL FIBRILLATION
     Dosage: 6.25 MG, BID
     Route: 065
     Dates: start: 2019
  2. VERAPAMIL [Concomitant]
     Active Substance: VERAPAMIL HYDROCHLORIDE
     Indication: PRODUCT USED FOR UNKNOWN INDICATION
     Dosage: UNK
     Route: 065
  3. COREG [Suspect]
     Active Substance: CARVEDILOL
     Indication: HYPERTENSION
     Dosage: 3.125 MG, 1D
     Route: 065
     Dates: start: 201907
  4. COREG [Suspect]
     Active Substance: CARVEDILOL
     Dosage: 3.125 MG, 1D
     Route: 065
     Dates: start: 2019

REACTIONS (4)
  - Dizziness [Recovered/Resolved]
  - Product use in unapproved indication [Unknown]
  - Asthenia [Recovered/Resolved]
  - Off label use [Unknown]

NARRATIVE: CASE EVENT DATE: 2019
